FAERS Safety Report 12636959 (Version 4)
Quarter: 2016Q4

REPORT INFORMATION
  Report Type: Report from Study
  Country: US (occurrence: US)
  Receive Date: 20160809
  Receipt Date: 20161024
  Transmission Date: 20170207
  Serious: Yes (Other)
  Sender: FDA-Public Use
  Company Number: PHEH2016US019725

PATIENT
  Age: 14 Year
  Sex: Female

DRUGS (2)
  1. ILARIS [Suspect]
     Active Substance: CANAKINUMAB
     Dosage: 150 MG, (Q4 WEEKS)
     Route: 058
     Dates: start: 20160801
  2. ILARIS [Suspect]
     Active Substance: CANAKINUMAB
     Indication: CRYOPYRIN ASSOCIATED PERIODIC SYNDROME
     Dosage: UNK
     Route: 058

REACTIONS (2)
  - Condition aggravated [Unknown]
  - Cryopyrin associated periodic syndrome [Unknown]

NARRATIVE: CASE EVENT DATE: 20160704
